FAERS Safety Report 22104728 (Version 2)
Quarter: 2023Q1

REPORT INFORMATION
  Report Type: Report from Study
  Country: US (occurrence: US)
  Receive Date: 20230316
  Receipt Date: 20230321
  Transmission Date: 20230417
  Serious: Yes (Hospitalization)
  Sender: FDA-Public Use
  Company Number: US-ABBVIE-4343122

PATIENT
  Age: 96 Year
  Sex: Male

DRUGS (1)
  1. RINVOQ [Suspect]
     Active Substance: UPADACITINIB
     Indication: Product used for unknown indication
     Dosage: DISCONTINUED IN 2023
     Route: 048
     Dates: start: 20230222, end: 202303

REACTIONS (4)
  - Asthenia [Not Recovered/Not Resolved]
  - Fall [Unknown]
  - Pneumonia [Unknown]
  - Mobility decreased [Unknown]

NARRATIVE: CASE EVENT DATE: 20230309
